FAERS Safety Report 8401194-3 (Version None)
Quarter: 2012Q2

REPORT INFORMATION
  Report Type: 
  Country: None (occurrence: None)
  Receive Date: 20120530
  Receipt Date: 20120530
  Transmission Date: 20120825
  Serious: No
  Sender: FDA-Public Use
  Company Number: None

PATIENT
  Age: 60 Year
  Sex: Female
  Weight: 68.0396 kg

DRUGS (3)
  1. HYDROCORTISONE ACETATE [Suspect]
     Indication: COMPLICATION OF PREGNANCY
     Dosage: 1 SUPPOSITORY 2-3 X/ DAY/ AS NEED RECTAL
     Route: 054
     Dates: start: 20120518, end: 20120520
  2. HYDROCORTISONE ACETATE [Suspect]
     Indication: CONDITION AGGRAVATED
     Dosage: 1 SUPPOSITORY 2-3 X/ DAY/ AS NEED RECTAL
     Route: 054
     Dates: start: 20120518, end: 20120520
  3. HYDROCORTISONE ACETATE [Suspect]
     Indication: HAEMORRHOIDS
     Dosage: 1 SUPPOSITORY 2-3 X/ DAY/ AS NEED RECTAL
     Route: 054
     Dates: start: 20120518, end: 20120520

REACTIONS (6)
  - ARTHRALGIA [None]
  - PRODUCT QUALITY ISSUE [None]
  - INFLAMMATION [None]
  - MYALGIA [None]
  - PRODUCT SOLUBILITY ABNORMAL [None]
  - PAIN [None]
